FAERS Safety Report 17490135 (Version 1)
Quarter: 2020Q1

REPORT INFORMATION
  Report Type: Spontaneous
  Country: US (occurrence: US)
  Receive Date: 20200303
  Receipt Date: 20200303
  Transmission Date: 20200409
  Serious: No
  Sender: FDA-Public Use
  Company Number: US-AKORN PHARMACEUTICALS-2019AKN02418

PATIENT
  Age: 37 Year
  Sex: Female
  Weight: 54.88 kg

DRUGS (5)
  1. MYORISAN [Suspect]
     Active Substance: ISOTRETINOIN
     Indication: ACNE
     Dosage: 60 MG, 1X/DAY
     Route: 048
     Dates: start: 20190627, end: 20190821
  2. MYORISAN [Suspect]
     Active Substance: ISOTRETINOIN
     Dosage: FOR A TOTAL OF 60 MG DAILY
     Dates: start: 20190822, end: 20190919
  3. MYORISAN [Suspect]
     Active Substance: ISOTRETINOIN
     Indication: ACNE
     Dosage: 20 MG, 1X/DAY
     Route: 048
     Dates: start: 20190425, end: 20190522
  4. MYORISAN [Suspect]
     Active Substance: ISOTRETINOIN
     Dosage: FOR A TOTAL OF 60 MG DAILY
     Dates: start: 20190822, end: 20190919
  5. MYORISAN [Suspect]
     Active Substance: ISOTRETINOIN
     Indication: ACNE
     Dosage: 40 MG, 1X/DAY
     Route: 048
     Dates: start: 20190523, end: 20190626

REACTIONS (3)
  - Lip dry [Recovered/Resolved]
  - Vision blurred [Recovered/Resolved]
  - Off label use [Recovered/Resolved]

NARRATIVE: CASE EVENT DATE: 2019
